FAERS Safety Report 9157393 (Version 1)
Quarter: 2013Q1

REPORT INFORMATION
  Report Type: Spontaneous
  Country: US (occurrence: None)
  Receive Date: 20130204
  Receipt Date: 20130204
  Transmission Date: 20140127
  Serious: Yes (Other)
  Sender: FDA-Public Use
  Company Number: AUR-APL-2013-01066

PATIENT
  Age: 56 Year
  Sex: Female
  Weight: 59.86 kg

DRUGS (8)
  1. LISINOPRIL (LISINOPRIL) [Suspect]
     Indication: HYPERTENSION
     Dosage: 25 MG (12.5 MG, 2 IN 1 D), UNKNOWN
     Dates: start: 2010, end: 2010
  2. LYRICA [Suspect]
     Dosage: 450 MG (150 MG, 3 IN 1 D), UNKNOWN?
     Dates: start: 2005, end: 2010
  3. EFFEXOR [Suspect]
     Dosage: 50 MG (25 MG, 2 IN 1 D), ORAL
     Route: 048
     Dates: start: 2010, end: 2010
  4. CYTOTEC (MISOPROSTOL) [Concomitant]
  5. VOLTAREN (DICLOFENAC) [Concomitant]
  6. COREG (CARVEDILOL) [Concomitant]
  7. PRILOSEC [Concomitant]
  8. HYDROCHLOROTHIAZIDE (HYDROCHLOROTHIAZIDE) [Concomitant]

REACTIONS (6)
  - Visual acuity reduced [None]
  - Hypertension [None]
  - Pain in extremity [None]
  - Muscle spasms [None]
  - Foot deformity [None]
  - Blood sodium decreased [None]
